FAERS Safety Report 4323409-3 (Version None)
Quarter: 2004Q1

REPORT INFORMATION
  Report Type: 
  Country: None (occurrence: None)
  Receive Date: 20040325
  Receipt Date: 20040316
  Transmission Date: 20041129
  Serious: Yes (Other)
  Sender: FDA-Public Use
  Company Number: PT-GLAXOSMITHKLINE-B0326969A

PATIENT
  Age: 31 Year
  Sex: Female

DRUGS (1)
  1. FLUTAIDE [Suspect]
     Indication: RHINITIS HYPERTROPHIC
     Dosage: 200MCG PER DAY
     Route: 045
     Dates: start: 20040120, end: 20040130

REACTIONS (5)
  - ADHESION [None]
  - BURNING SENSATION [None]
  - FACE OEDEMA [None]
  - MUCOUS MEMBRANE DISORDER [None]
  - RASH [None]
